FAERS Safety Report 12699551 (Version 1)
Quarter: 2016Q3

REPORT INFORMATION
  Report Type: Spontaneous
  Country: JP (occurrence: JP)
  Receive Date: 20160830
  Receipt Date: 20160830
  Transmission Date: 20161109
  Serious: Yes (Other)
  Sender: FDA-Public Use
  Company Number: JP-HQ SPECIALTY-JP-2016INT000870

PATIENT
  Age: 74 Year
  Sex: Male

DRUGS (3)
  1. CLOPIDOGREL [Suspect]
     Active Substance: CLOPIDOGREL BISULFATE
     Indication: MYOCARDIAL INFARCTION
     Dosage: 75 MG, QD
  2. CARBOPLATIN. [Suspect]
     Active Substance: CARBOPLATIN
     Indication: LUNG ADENOCARCINOMA STAGE III
     Dosage: CARBOPLATIN+PACLITAXEL+RADIATION, AUC=2, 40 MG/M^2, WEEKLY, 6 COURSES
  3. PACLITAXEL. [Suspect]
     Active Substance: PACLITAXEL
     Indication: LUNG ADENOCARCINOMA STAGE III
     Dosage: 70.0 MG, WEEKLY

REACTIONS (3)
  - Drug interaction [Unknown]
  - Neutropenia [Unknown]
  - Febrile neutropenia [Unknown]
